FAERS Safety Report 13369246 (Version 2)
Quarter: 2017Q1

REPORT INFORMATION
  Report Type: Spontaneous
  Country: US (occurrence: US)
  Receive Date: 20170324
  Receipt Date: 20170328
  Transmission Date: 20170429
  Serious: No
  Sender: FDA-Public Use
  Company Number: US-GLAXOSMITHKLINE-US2017039490

PATIENT
  Age: 78 Year
  Sex: Male

DRUGS (1)
  1. ADVAIR DISKUS [Suspect]
     Active Substance: FLUTICASONE PROPIONATE\SALMETEROL XINAFOATE
     Indication: PRODUCT USED FOR UNKNOWN INDICATION
     Dosage: 1 PUFF(S), QD
     Dates: start: 20170319

REACTIONS (5)
  - Extra dose administered [Unknown]
  - Prescribed underdose [Unknown]
  - Device use error [Unknown]
  - Wrong technique in product usage process [Unknown]
  - Dysphonia [Unknown]

NARRATIVE: CASE EVENT DATE: 20170319
